FAERS Safety Report 9805435 (Version 1)
Quarter: 2014Q1

REPORT INFORMATION
  Report Type: Spontaneous
  Country: US (occurrence: None)
  Receive Date: 20140107
  Receipt Date: 20140107
  Transmission Date: 20141002
  Serious: Yes (Other)
  Sender: FDA-Public Use
  Company Number: 2013P1022285

PATIENT
  Age: 54 Year
  Sex: Male

DRUGS (3)
  1. AMIODARONE [Suspect]
     Indication: VENTRICULAR TACHYCARDIA
     Route: 042
  2. AMIODARONE [Suspect]
     Indication: PROPHYLAXIS
     Route: 042
  3. SOTALOL [Concomitant]

REACTIONS (3)
  - Mental status changes [None]
  - Dialysis [None]
  - Hyponatraemia [None]
